FAERS Safety Report 24286704 (Version 3)
Quarter: 2025Q1

REPORT INFORMATION
  Report Type: Spontaneous
  Country: US (occurrence: US)
  Receive Date: 20240905
  Receipt Date: 20250226
  Transmission Date: 20250409
  Serious: No
  Sender: PFIZER
  Company Number: US-PFIZER INC-PV202400115664

PATIENT
  Age: 58 Year
  Sex: Female

DRUGS (8)
  1. CIBINQO [Suspect]
     Active Substance: ABROCITINIB
     Dosage: 1 TABLET DAILY
     Route: 048
  2. CIBINQO [Suspect]
     Active Substance: ABROCITINIB
  3. CIBINQO [Suspect]
     Active Substance: ABROCITINIB
     Dates: start: 20240905
  4. CIBINQO [Suspect]
     Active Substance: ABROCITINIB
     Dosage: EVERY OTHER DAY
     Dates: start: 20250201
  5. OMEPRAZOLE [Concomitant]
     Active Substance: OMEPRAZOLE
  6. NP THYROID [Concomitant]
     Active Substance: LEVOTHYROXINE\LIOTHYRONINE
  7. HYDROXYCHLOROQUINE [Concomitant]
     Active Substance: HYDROXYCHLOROQUINE
  8. THYROID [Concomitant]
     Active Substance: LEVOTHYROXINE\LIOTHYRONINE

REACTIONS (3)
  - Mouth ulceration [Recovered/Resolved]
  - Intentional product misuse [Unknown]
  - Therapeutic product effect incomplete [Unknown]

NARRATIVE: CASE EVENT DATE: 20240903
